FAERS Safety Report 6889927-9 (Version None)
Quarter: 2010Q3

REPORT INFORMATION
  Report Type: 
  Country: None (occurrence: None)
  Receive Date: 20100730
  Receipt Date: 20080602
  Transmission Date: 20110219
  Serious: Yes (Other)
  Sender: FDA-Public Use
  Company Number: US-PFIZER INC-2008033026

PATIENT
  Sex: Female

DRUGS (2)
  1. LIPITOR [Suspect]
     Indication: BLOOD CHOLESTEROL
     Dates: end: 20070101
  2. GLUCOTROL [Suspect]

REACTIONS (2)
  - BLOOD GLUCOSE FLUCTUATION [None]
  - LIVER FUNCTION TEST ABNORMAL [None]
